FAERS Safety Report 24146472 (Version 1)
Quarter: 2024Q3

REPORT INFORMATION
  Report Type: Report from Study
  Country: ES (occurrence: ES)
  Receive Date: 20240729
  Receipt Date: 20240729
  Transmission Date: 20241016
  Serious: Yes (Death, Other)
  Sender: VIIV
  Company Number: ES-JNJFOC-20240361246

PATIENT

DRUGS (14)
  1. RILPIVIRINE [Suspect]
     Active Substance: RILPIVIRINE
     Indication: HIV infection
     Dosage: 900 MG
     Route: 030
     Dates: start: 20230929, end: 20231102
  2. RILPIVIRINE [Suspect]
     Active Substance: RILPIVIRINE
     Indication: Multivisceral transplantation
     Dosage: UNK
     Route: 030
  3. VOCABRIA [Suspect]
     Active Substance: CABOTEGRAVIR SODIUM
     Indication: HIV infection
     Dosage: 600 MG
     Route: 030
     Dates: start: 20230929, end: 20231102
  4. VOCABRIA [Suspect]
     Active Substance: CABOTEGRAVIR SODIUM
     Indication: Multivisceral transplantation
     Dosage: UNK
     Route: 030
  5. VOCABRIA [Suspect]
     Active Substance: CABOTEGRAVIR SODIUM
  6. CEFTAZIDIME;NXL 104 [Concomitant]
     Indication: Multivisceral transplantation
     Dosage: UNK
     Route: 042
     Dates: start: 20231002, end: 20231211
  7. METRONIDAZOLE [Concomitant]
     Active Substance: METRONIDAZOLE
     Indication: Multivisceral transplantation
     Dosage: UNK
     Route: 042
     Dates: start: 20231002, end: 20231211
  8. ISAVUCONAZOLE [Concomitant]
     Active Substance: ISAVUCONAZOLE
     Indication: Multivisceral transplantation
     Dosage: UNK
     Route: 042
     Dates: start: 20231002, end: 20231211
  9. GANCICLOVIR [Concomitant]
     Active Substance: GANCICLOVIR
     Indication: Multivisceral transplantation
     Dosage: UNK
     Route: 042
     Dates: start: 20231002, end: 20231211
  10. SULFAMETHOXAZOLE\TRIMETHOPRIM [Concomitant]
     Active Substance: SULFAMETHOXAZOLE\TRIMETHOPRIM
     Indication: Multivisceral transplantation
     Dosage: UNK
     Route: 042
     Dates: start: 20231002, end: 20231211
  11. ENOXAPARIN [Concomitant]
     Active Substance: ENOXAPARIN
     Indication: Multivisceral transplantation
     Dosage: 40 MG, QD (40 MG/24H)
     Route: 058
     Dates: start: 20230928, end: 20231211
  12. ASPIRIN [Concomitant]
     Active Substance: ASPIRIN
     Indication: Multivisceral transplantation
     Dosage: 100 MG
     Route: 048
     Dates: start: 20230928, end: 20231211
  13. TACROLIMUS [Concomitant]
     Active Substance: TACROLIMUS
     Indication: Multivisceral transplantation
     Dosage: UNK
     Route: 042
     Dates: start: 20230928, end: 20231211
  14. EVEROLIMUS [Concomitant]
     Active Substance: EVEROLIMUS
     Indication: Multivisceral transplantation
     Dosage: UNK
     Route: 042
     Dates: start: 20230928, end: 20231211

REACTIONS (3)
  - Shock haemorrhagic [Fatal]
  - Transplant rejection [Unknown]
  - Hypovolaemic shock [Recovered/Resolved]

NARRATIVE: CASE EVENT DATE: 20231001
